FAERS Safety Report 5411650-8 (Version None)
Quarter: 2007Q3

REPORT INFORMATION
  Report Type: 
  Country: None (occurrence: None)
  Receive Date: 20070810
  Receipt Date: 20070731
  Transmission Date: 20080115
  Serious: Yes (Other)
  Sender: FDA-Public Use
  Company Number: US-PFIZER INC-2007064727

PATIENT
  Age: 45 Year
  Sex: Female

DRUGS (2)
  1. CHANTIX [Suspect]
     Indication: SMOKING CESSATION THERAPY
  2. EFFEXOR [Suspect]
     Indication: ANXIETY
     Dates: start: 20070501, end: 20070101

REACTIONS (9)
  - AMNESIA [None]
  - ANXIETY [None]
  - BIPOLAR DISORDER [None]
  - FATIGUE [None]
  - HEART RATE INCREASED [None]
  - MANIA [None]
  - SPEECH DISORDER [None]
  - SUICIDAL IDEATION [None]
  - THROAT TIGHTNESS [None]
